FAERS Safety Report 8600693 (Version 3)
Quarter: 2015Q4

REPORT INFORMATION
  Report Type: Spontaneous
  Country: US (occurrence: US)
  Receive Date: 20120606
  Receipt Date: 20151123
  Transmission Date: 20160305
  Serious: Yes (Other)
  Sender: FDA-Public Use
  Company Number: US-BAYER-2012-055451

PATIENT
  Age: 36 Year
  Sex: Female
  Weight: 77.1 kg

DRUGS (4)
  1. YASMIN [Suspect]
     Active Substance: DROSPIRENONE\ETHINYL ESTRADIOL
     Indication: MENORRHAGIA
     Dosage: UNK UNK, QD
     Dates: start: 20070205, end: 20070207
  2. DOVONEX [Concomitant]
     Active Substance: CALCIPOTRIENE
     Dosage: DAILY
     Route: 061
     Dates: start: 20061104, end: 20070110
  3. MIDOL [ACETYLSALICYLIC ACID,CAFFEINE,CINNAMEDRINE] [Concomitant]
  4. OLUX [Concomitant]
     Active Substance: CLOBETASOL PROPIONATE
     Dosage: DAILY
     Route: 061
     Dates: start: 20061104, end: 20070124

REACTIONS (8)
  - Product use issue [None]
  - Transient ischaemic attack [None]
  - Dizziness [None]
  - Limb discomfort [None]
  - Pain [None]
  - Hemiparesis [None]
  - Embolism arterial [None]
  - Clumsiness [None]

NARRATIVE: CASE EVENT DATE: 20070207
